FAERS Safety Report 7574301 (Version 2)
Quarter: 2013Q1

REPORT INFORMATION
  Report Type: Spontaneous
  Country: KR (occurrence: KR)
  Receive Date: 20100907
  Receipt Date: 20130313
  Transmission Date: 20140127
  Serious: Yes (Other)
  Sender: FDA-Public Use
  Company Number: KR-PFIZER INC-2010107977

PATIENT
  Sex: Male

DRUGS (4)
  1. CARDURA [Suspect]
     Dosage: UNK
     Route: 048
  2. DETRUSITOL [Suspect]
     Dosage: UNK
     Route: 048
  3. HYTRIN [Suspect]
     Dosage: UNK
     Route: 048
  4. FINASTERIDE [Suspect]
     Dosage: UNK
     Route: 048

REACTIONS (2)
  - Urinary retention [Recovered/Resolved]
  - Urinary incontinence [Unknown]
